FAERS Safety Report 12644463 (Version 1)
Quarter: 2016Q3

REPORT INFORMATION
  Report Type: Report from Study
  Country: PK (occurrence: PK)
  Receive Date: 20160811
  Receipt Date: 20160811
  Transmission Date: 20161109
  Serious: Yes (Death, Life-Threatening, Other)
  Sender: FDA-Public Use
  Company Number: PHHY2016PK109827

PATIENT
  Age: 79 Year
  Sex: Male

DRUGS (1)
  1. ACLASTA [Suspect]
     Active Substance: ZOLEDRONIC ACID
     Indication: OSTEOPOROSIS
     Dosage: 5 MG, Q12MO (5 MG/100 ML)
     Route: 042
     Dates: start: 20150917

REACTIONS (4)
  - Fall [Unknown]
  - Blood pressure inadequately controlled [Fatal]
  - Myocardial infarction [Fatal]
  - Dislocation of vertebra [Unknown]

NARRATIVE: CASE EVENT DATE: 20160106
